FAERS Safety Report 20063296 (Version 1)
Quarter: 2021Q4

REPORT INFORMATION
  Report Type: Spontaneous
  Country: US (occurrence: US)
  Receive Date: 20211112
  Receipt Date: 20211112
  Transmission Date: 20220303
  Serious: No
  Sender: FDA-Public Use
  Company Number: US-ALKERMES INC.-ALK-2021-005791

PATIENT
  Sex: Male

DRUGS (2)
  1. VIVITROL [Suspect]
     Active Substance: NALTREXONE
     Indication: Drug dependence
     Dosage: 380 MILLIGRAM, QMO
     Route: 030
     Dates: start: 20211029
  2. VIVITROL [Suspect]
     Active Substance: NALTREXONE
     Dosage: 380 UNK
     Route: 030
     Dates: start: 2019, end: 2019

REACTIONS (2)
  - Off label use [Not Recovered/Not Resolved]
  - Drug dependence [Recovered/Resolved]
